FAERS Safety Report 13287621 (Version 2)
Quarter: 2017Q1

REPORT INFORMATION
  Report Type: Report from Study
  Country: None (occurrence: CA)
  Receive Date: 20170302
  Receipt Date: 20170331
  Transmission Date: 20170428
  Serious: Yes (Other)
  Sender: FDA-Public Use
  Company Number: CA-ABBVIE-16P-028-1658076-00

PATIENT
  Age: 30 Year
  Sex: Female

DRUGS (8)
  1. INFLIXIMAB [Concomitant]
     Active Substance: INFLIXIMAB
     Indication: COLITIS ULCERATIVE
     Route: 041
     Dates: start: 20150904
  2. AZATHIOPRINE (IMM) [Suspect]
     Active Substance: AZATHIOPRINE
     Route: 065
     Dates: start: 20141219, end: 20150106
  3. HYDROCORTISONE. [Concomitant]
     Active Substance: HYDROCORTISONE
     Indication: ADVERSE DRUG REACTION
     Dosage: Q 8 WEEKS WITH INFLIXIMAB INFUSION
     Route: 042
     Dates: start: 20150921
  4. HUMIRA [Suspect]
     Active Substance: ADALIMUMAB
     Indication: COLITIS ULCERATIVE
     Route: 058
     Dates: start: 20150317, end: 20150804
  5. AZATHIOPRINE (IMM) [Suspect]
     Active Substance: AZATHIOPRINE
     Route: 065
     Dates: start: 20150107, end: 20151123
  6. AZATHIOPRINE (IMM) [Suspect]
     Active Substance: AZATHIOPRINE
     Indication: COLITIS ULCERATIVE
     Route: 065
     Dates: start: 20111004
  7. AZATHIOPRINE (IMM) [Suspect]
     Active Substance: AZATHIOPRINE
     Route: 065
     Dates: start: 20151124, end: 20160307
  8. HYDROCORTISONE. [Concomitant]
     Active Substance: HYDROCORTISONE
     Indication: PROPHYLAXIS

REACTIONS (5)
  - Maternal distress during labour [Unknown]
  - Nausea [Not Recovered/Not Resolved]
  - Live birth [Unknown]
  - Exposure during pregnancy [Unknown]
  - Amniotic fluid volume decreased [Unknown]

NARRATIVE: CASE EVENT DATE: 20170112
